FAERS Safety Report 7205931-5 (Version None)
Quarter: 2011Q1

REPORT INFORMATION
  Report Type: 
  Country: None (occurrence: None)
  Receive Date: 20110103
  Receipt Date: 20101015
  Transmission Date: 20110831
  Serious: Yes (Other)
  Sender: FDA-Public Use
  Company Number: US-BIOGENIDEC-2010BI031555

PATIENT
  Age: 32 Year
  Sex: Female

DRUGS (1)
  1. TYSABRI [Suspect]
     Indication: CROHN'S DISEASE
     Route: 042
     Dates: start: 20090304, end: 20100501

REACTIONS (4)
  - LARGE INTESTINE PERFORATION [None]
  - DRUG INEFFECTIVE [None]
  - HAEMATOCHEZIA [None]
  - DEFAECATION URGENCY [None]
